FAERS Safety Report 5592192-6 (Version None)
Quarter: 2008Q1

REPORT INFORMATION
  Report Type: 
  Country: None (occurrence: None)
  Receive Date: 20080115
  Receipt Date: 20070806
  Transmission Date: 20080703
  Serious: No
  Sender: FDA-Public Use
  Company Number: US-ABBOTT-07P-163-0415860-00

PATIENT
  Sex: Male

DRUGS (6)
  1. ADVICOR [Suspect]
     Indication: HIGH DENSITY LIPOPROTEIN
     Route: 048
  2. ADVICOR [Suspect]
     Route: 048
  3. LISINOPRIL [Concomitant]
     Indication: DRUG USE FOR UNKNOWN INDICATION
  4. METOPROLOL [Concomitant]
     Indication: DRUG USE FOR UNKNOWN INDICATION
  5. NIFEDIPINE [Concomitant]
     Indication: DRUG USE FOR UNKNOWN INDICATION
  6. ASPIRIN [Concomitant]
     Indication: DRUG USE FOR UNKNOWN INDICATION

REACTIONS (2)
  - BLOOD TRIGLYCERIDES INCREASED [None]
  - HEART RATE INCREASED [None]
